FAERS Safety Report 5643113-9 (Version None)
Quarter: 2008Q1

REPORT INFORMATION
  Report Type: 
  Country: None (occurrence: None)
  Receive Date: 20080228
  Receipt Date: 20080222
  Transmission Date: 20080703
  Serious: Yes (Other)
  Sender: FDA-Public Use
  Company Number: US-ASTRAZENECA-2008UW03759

PATIENT
  Age: 47 Year
  Sex: Female
  Weight: 66.7 kg

DRUGS (3)
  1. METOPROLOL SUCCINATE [Suspect]
     Indication: HYPERTENSION
     Route: 048
     Dates: start: 20070801
  2. METOPROLOL SUCCINATE [Suspect]
     Route: 048
  3. DIURETIC [Concomitant]

REACTIONS (6)
  - DEAFNESS [None]
  - EAR DISCOMFORT [None]
  - HEADACHE [None]
  - TINNITUS [None]
  - VISION BLURRED [None]
  - WEIGHT INCREASED [None]
